FAERS Safety Report 5006265-X (Version None)
Quarter: 2006Q2

REPORT INFORMATION
  Report Type: 
  Country: None (occurrence: None)
  Receive Date: 20060516
  Receipt Date: 20060502
  Transmission Date: 20061013
  Serious: Yes (Hospitalization)
  Sender: FDA-Public Use
  Company Number: 2006RR-02225

PATIENT
  Age: 49 Year
  Sex: Female

DRUGS (13)
  1. FLUOXETINE [Suspect]
     Dosage: 10 MG
  2. LEVOFLOXACIN [Suspect]
     Indication: PYELONEPHRITIS
     Dosage: 500 MG
  3. IMIPRAMINE [Suspect]
     Dosage: 50 MG
  4. HYDROCHLOROTHIAZIDE [Concomitant]
  5. GABAPENTIN (GAPAPENTIN) TABLET [Concomitant]
  6. PROPRANOLOL [Concomitant]
  7. CARISPRODOL (CARISOPRODOL) TABLET [Concomitant]
  8. MIRTAZAPINE [Concomitant]
  9. LORATADINE [Concomitant]
  10. PSEUDOEPHEDRINE HCL [Concomitant]
  11. FERROUS SULPHATE (FERROUS SULFATE) [Concomitant]
  12. POTASSIUM [Concomitant]
  13. CEFTRIAXONE [Concomitant]

REACTIONS (4)
  - CHEST DISCOMFORT [None]
  - DRUG INTERACTION [None]
  - DYSPNOEA [None]
  - ELECTROCARDIOGRAM QT CORRECTED INTERVAL PROLONGED [None]
